FAERS Safety Report 5339232-7 (Version None)
Quarter: 2007Q2

REPORT INFORMATION
  Report Type: 
  Country: None (occurrence: None)
  Receive Date: 20070525
  Receipt Date: 20070511
  Transmission Date: 20071010
  Serious: Yes (Other)
  Sender: FDA-Public Use
  Company Number: S07-GER-02132-01

PATIENT
  Sex: Male

DRUGS (1)
  1. ESCITALOPRAM OXALATE [Suspect]
     Dosage: 20 MG QD

REACTIONS (2)
  - BLINDNESS TRANSIENT [None]
  - EYE HAEMORRHAGE [None]
